FAERS Safety Report 8886484 (Version 1)
Quarter: 2012Q4

REPORT INFORMATION
  Report Type: 
  Country: US (occurrence: US)
  Receive Date: 20121105
  Receipt Date: 20121105
  Transmission Date: 20130627
  Serious: Yes (Hospitalization)
  Sender: FDA-Public Use
  Company Number: US-ASTRAZENECA-2012SE82180

PATIENT
  Age: 46 Year
  Sex: Female

DRUGS (4)
  1. NEXIUM [Suspect]
     Dosage: ASA
     Route: 048
  2. OMEPRAZOLE [Suspect]
     Indication: GOUT
     Route: 048
  3. NITROSTAT [Concomitant]
     Dosage: PRN
  4. TRICOR [Concomitant]

REACTIONS (2)
  - Chest pain [Unknown]
  - Upper respiratory tract infection [Unknown]
